FAERS Safety Report 8743363 (Version 3)
Quarter: 2012Q4

REPORT INFORMATION
  Report Type: 
  Country: US (occurrence: US)
  Receive Date: 20120824
  Receipt Date: 20120924
  Transmission Date: 20130627
  Serious: Yes (Hospitalization)
  Sender: FDA-Public Use
  Company Number: US-ACTELION-A-US2012-68792

PATIENT
  Age: 32 Year
  Sex: Female

DRUGS (3)
  1. VELETRI [Suspect]
     Indication: PULMONARY ARTERIAL HYPERTENSION
     Dosage: 9.9 ng/kg, per min
     Route: 042
     Dates: start: 20120518
  2. ASPIRIN [Concomitant]
  3. FUROSEMIDE [Concomitant]

REACTIONS (11)
  - Dehydration [Unknown]
  - Lung transplant [Recovering/Resolving]
  - Condition aggravated [Unknown]
  - Urinary tract infection [Unknown]
  - Pain in extremity [Unknown]
  - Insomnia [Unknown]
  - Nausea [Unknown]
  - Malaise [Unknown]
  - Dizziness [Unknown]
  - Headache [Unknown]
  - Flushing [Unknown]
